FAERS Safety Report 10006406 (Version 4)
Quarter: 2014Q3

REPORT INFORMATION
  Report Type: Report from Study
  Country: FR (occurrence: FR)
  Receive Date: 20140313
  Receipt Date: 20140806
  Transmission Date: 20150326
  Serious: Yes (Other)
  Sender: FDA-Public Use
  Company Number: PHHY2014FR030585

PATIENT
  Age: 61 Year
  Sex: Male
  Weight: 70 kg

DRUGS (1)
  1. SIGNIFOR [Suspect]
     Active Substance: PASIREOTIDE
     Indication: PITUITARY-DEPENDENT CUSHING^S SYNDROME
     Dosage: 1200 UG, UNK
     Route: 058
     Dates: start: 20121030, end: 20131217

REACTIONS (3)
  - Hyponatraemia [Recovered/Resolved]
  - Blood cortisol decreased [Unknown]
  - Hypotension [Recovered/Resolved]
